FAERS Safety Report 10459759 (Version 5)
Quarter: 2015Q1

REPORT INFORMATION
  Report Type: Spontaneous
  Country: US (occurrence: US)
  Receive Date: 20140917
  Receipt Date: 20150310
  Transmission Date: 20150720
  Serious: Yes (Hospitalization, Other)
  Sender: FDA-Public Use
  Company Number: US-GLAXOSMITHKLINE-A1089346A

PATIENT
  Age: 82 Year
  Sex: Male
  Weight: 57.14 kg

DRUGS (1)
  1. VOTRIENT [Suspect]
     Active Substance: PAZOPANIB HYDROCHLORIDE
     Indication: RENAL CANCER
     Dosage: 200 MG TABLETS, UNKNOWN DOSING
     Route: 065
     Dates: start: 20131201

REACTIONS (2)
  - Cholecystectomy [Recovered/Resolved]
  - Cholecystitis infective [Unknown]

NARRATIVE: CASE EVENT DATE: 20140904
